FAERS Safety Report 7057533-1 (Version None)
Quarter: 2010Q4

REPORT INFORMATION
  Report Type: 
  Country: None (occurrence: None)
  Receive Date: 20101022
  Receipt Date: 20101019
  Transmission Date: 20110411
  Serious: Yes (Death, Hospitalization)
  Sender: FDA-Public Use
  Company Number: PHHY2010US66833

PATIENT
  Sex: Male

DRUGS (3)
  1. NEORAL [Suspect]
     Indication: RHEUMATOID ARTHRITIS
     Dosage: 100 MG PER DAY
     Route: 048
     Dates: start: 20100512
  2. NEORAL [Suspect]
     Dosage: 150 MG PER DAY
     Route: 048
     Dates: end: 20100711
  3. NEUPOGEN [Concomitant]
     Indication: INFECTION
     Dosage: UNK

REACTIONS (4)
  - DEATH [None]
  - INFECTION [None]
  - MECHANICAL VENTILATION [None]
  - SEPSIS [None]
